FAERS Safety Report 23345415 (Version 1)
Quarter: 2023Q4

REPORT INFORMATION
  Report Type: Spontaneous
  Country: TW (occurrence: TW)
  Receive Date: 20231228
  Receipt Date: 20231228
  Transmission Date: 20240109
  Serious: Yes (Hospitalization)
  Sender: FDA-Public Use
  Company Number: TW-STRIDES ARCOLAB LIMITED-2023SP018987

PATIENT
  Sex: Male

DRUGS (2)
  1. CISPLATIN [Suspect]
     Active Substance: CISPLATIN
     Indication: Small cell lung cancer
     Dosage: UNK
     Route: 065
  2. ETOPOSIDE [Suspect]
     Active Substance: ETOPOSIDE
     Indication: Small cell lung cancer
     Dosage: UNK
     Route: 065

REACTIONS (2)
  - Neutropenic colitis [Recovered/Resolved]
  - Off label use [Unknown]
